FAERS Safety Report 10418949 (Version 1)
Quarter: 2014Q2

REPORT INFORMATION
  Report Type: Report from Study
  Country: US (occurrence: None)
  Receive Date: 20140627
  Receipt Date: 20140627
  Transmission Date: 20141212
  Serious: No
  Sender: FDA-Public Use
  Company Number: CABO-14004317

PATIENT
  Age: 67 Year
  Sex: Male

DRUGS (1)
  1. COMETRIQ (CABOZANTINIB) CAPSULE [Suspect]
     Indication: PROSTATE CANCER
     Route: 048
     Dates: start: 20140517

REACTIONS (7)
  - Back pain [None]
  - Musculoskeletal pain [None]
  - Muscular weakness [None]
  - Hypoaesthesia [None]
  - Dysgeusia [None]
  - Decreased appetite [None]
  - Off label use [None]
